FAERS Safety Report 19777779 (Version 1)
Quarter: 2021Q3

REPORT INFORMATION
  Report Type: Spontaneous
  Country: US (occurrence: US)
  Receive Date: 20210901
  Receipt Date: 20210901
  Transmission Date: 20211014
  Serious: Yes (Hospitalization)
  Sender: FDA-Public Use
  Company Number: None

PATIENT
  Age: 57 Year
  Sex: Male
  Weight: 114 kg

DRUGS (6)
  1. AZITHROMYCIN ANHYDROUS. [Concomitant]
     Active Substance: AZITHROMYCIN ANHYDROUS
     Dates: start: 20210814
  2. MEDROL DOSE PAK [Concomitant]
     Dates: start: 20210814
  3. IVERMECTIN. [Concomitant]
     Active Substance: IVERMECTIN
     Dates: start: 20210814
  4. REGEN?COV [Suspect]
     Active Substance: CASIRIVIMAB\IMDEVIMAB
     Indication: COVID-19
     Dosage: ?          OTHER FREQUENCY:ONCE;?
     Route: 041
     Dates: start: 20210817, end: 20210817
  5. BUDESONIDE INHALER [Concomitant]
     Dates: start: 20210814
  6. ALBUTEROL INHALER [Concomitant]
     Active Substance: ALBUTEROL
     Dates: start: 20210814

REACTIONS (6)
  - Acute kidney injury [None]
  - Respiratory failure [None]
  - White blood cell count increased [None]
  - COVID-19 pneumonia [None]
  - Lactic acidosis [None]
  - Transaminases increased [None]

NARRATIVE: CASE EVENT DATE: 20210818
